FAERS Safety Report 4621851-4 (Version None)
Quarter: 2005Q1

REPORT INFORMATION
  Report Type: 
  Country: None (occurrence: None)
  Receive Date: 20050329
  Receipt Date: 20050323
  Transmission Date: 20050727
  Serious: Yes (Hospitalization)
  Sender: FDA-Public Use
  Company Number: FR-ROCHE-399604

PATIENT
  Age: 90 Year
  Sex: Female

DRUGS (1)
  1. ROCEPHIN [Suspect]
     Indication: DRUG USE FOR UNKNOWN INDICATION
     Dosage: FORMULATION REPORTED AS INJECTABLE SOLUTION
     Route: 030
     Dates: start: 20050120, end: 20050128

REACTIONS (6)
  - ERYTHEMA [None]
  - LOCALISED OEDEMA [None]
  - OEDEMA PERIPHERAL [None]
  - PRURITUS GENERALISED [None]
  - THERAPY NON-RESPONDER [None]
  - URTICARIA [None]
